FAERS Safety Report 18472955 (Version 1)
Quarter: 2020Q4

REPORT INFORMATION
  Report Type: Spontaneous
  Country: US (occurrence: US)
  Receive Date: 20201106
  Receipt Date: 20201106
  Transmission Date: 20210114
  Serious: No
  Sender: FDA-Public Use
  Company Number: US-MYLANLABS-2020M1091311

PATIENT
  Sex: Female
  Weight: 50 kg

DRUGS (2)
  1. WIXELA INHUB [Suspect]
     Active Substance: FLUTICASONE PROPIONATE\SALMETEROL XINAFOATE
     Indication: PRODUCT USED FOR UNKNOWN INDICATION
     Dosage: 250/50 MCG (ONCE OR TWICE A DAY)
     Route: 055
     Dates: start: 20201005
  2. ALBUTEROL                          /00139501/ [Concomitant]
     Active Substance: ALBUTEROL
     Dosage: UNK

REACTIONS (3)
  - Product quality issue [Unknown]
  - Device issue [Not Recovered/Not Resolved]
  - Off label use [Not Recovered/Not Resolved]
